FAERS Safety Report 9358967 (Version 3)
Quarter: 2014Q1

REPORT INFORMATION
  Report Type: Spontaneous
  Country: US (occurrence: US)
  Receive Date: 20130620
  Receipt Date: 20140218
  Transmission Date: 20141002
  Serious: Yes (Hospitalization)
  Sender: FDA-Public Use
  Company Number: US-B.I. PHARMACEUTICALS,INC./RIDGEFIELD-2013-BI-17400BP

PATIENT
  Sex: Male
  Weight: 129.27 kg

DRUGS (11)
  1. PRADAXA [Suspect]
     Indication: ATRIAL FIBRILLATION
     Dosage: 300 MG
     Dates: start: 20110722, end: 20120104
  2. ASPIRIN [Concomitant]
  3. LEVEMIR [Concomitant]
     Dates: start: 2005
  4. ISOSORBIDE MONONITRATE ER [Concomitant]
     Dates: start: 1995, end: 201206
  5. TOPROL XL [Concomitant]
     Dates: start: 20110131, end: 2012
  6. MICARDIS [Concomitant]
     Dates: start: 2008, end: 201205
  7. FUROSEMIDE [Concomitant]
     Dates: start: 1995
  8. PRAVASTATIN SODIUM [Concomitant]
     Dates: start: 1995
  9. SPIRONOLACTONE [Concomitant]
     Dates: start: 2008, end: 201206
  10. AMLODIPINE BESYLATE [Concomitant]
     Dates: end: 201212
  11. CELEXA [Concomitant]

REACTIONS (3)
  - Subarachnoid haemorrhage [Unknown]
  - Fall [Unknown]
  - Head injury [Unknown]
